FAERS Safety Report 17930009 (Version 1)
Quarter: 2020Q2

REPORT INFORMATION
  Report Type: Report from Study
  Country: None (occurrence: US)
  Receive Date: 20200623
  Receipt Date: 20200623
  Transmission Date: 20200714
  Serious: No
  Sender: FDA-Public Use
  Company Number: US-BIOVITRUM-2019US1814

PATIENT
  Sex: Male

DRUGS (1)
  1. KINERET [Suspect]
     Active Substance: ANAKINRA
     Indication: ACUTE FEBRILE NEUTROPHILIC DERMATOSIS
     Route: 058
     Dates: start: 20190614

REACTIONS (6)
  - Rash erythematous [Unknown]
  - Fatigue [Unknown]
  - Rash papular [Unknown]
  - Pruritus [Unknown]
  - Nausea [Unknown]
  - Off label use [Unknown]
